FAERS Safety Report 14011068 (Version 3)
Quarter: 2018Q1

REPORT INFORMATION
  Report Type: Spontaneous
  Country: US (occurrence: US)
  Receive Date: 20170926
  Receipt Date: 20180227
  Transmission Date: 20180508
  Serious: Yes (Other)
  Sender: FDA-Public Use
  Company Number: US-ROCHE-1997990

PATIENT
  Age: 34 Year
  Sex: Female
  Weight: 65.38 kg

DRUGS (3)
  1. ZYRTEC [Concomitant]
     Active Substance: CETIRIZINE HYDROCHLORIDE
     Indication: HYPERSENSITIVITY
     Route: 048
  2. ZYRTEC [Concomitant]
     Active Substance: CETIRIZINE HYDROCHLORIDE
     Indication: URTICARIA
  3. XOLAIR [Suspect]
     Active Substance: OMALIZUMAB
     Indication: PRODUCT USED FOR UNKNOWN INDICATION
     Route: 058
     Dates: start: 20170921

REACTIONS (12)
  - Injection site warmth [Unknown]
  - Headache [Unknown]
  - Panic attack [Unknown]
  - Bronchospasm [Unknown]
  - Cough [Unknown]
  - Injection site swelling [Unknown]
  - Anxiety [Unknown]
  - Flushing [Unknown]
  - Respiratory rate increased [Recovered/Resolved]
  - Throat tightness [Unknown]
  - Nausea [Unknown]
  - Injection site erythema [Unknown]

NARRATIVE: CASE EVENT DATE: 20170921
